FAERS Safety Report 9204601 (Version 1)
Quarter: 2013Q2

REPORT INFORMATION
  Report Type: Spontaneous
  Country: PT (occurrence: PT)
  Receive Date: 20130402
  Receipt Date: 20130402
  Transmission Date: 20140414
  Serious: Yes (Death, Hospitalization)
  Sender: FDA-Public Use
  Company Number: PT-CELGENEUS-130-50794-13032965

PATIENT
  Age: 84 Year
  Sex: Male
  Weight: 70 kg

DRUGS (11)
  1. VIDAZA [Suspect]
     Indication: MYELODYSPLASTIC SYNDROME
     Route: 058
     Dates: start: 20090629, end: 20101024
  2. FOLICIL [Concomitant]
     Indication: PRODUCT USED FOR UNKNOWN INDICATION
     Route: 065
  3. LEGOFER [Concomitant]
     Indication: PRODUCT USED FOR UNKNOWN INDICATION
     Route: 065
  4. RYTMONORM [Concomitant]
     Indication: ARRHYTHMIA
     Route: 065
  5. SERMION [Concomitant]
     Indication: PRODUCT USED FOR UNKNOWN INDICATION
     Route: 065
  6. VICTAN [Concomitant]
     Indication: INSOMNIA
     Route: 048
  7. ALLOPURINOL [Concomitant]
     Indication: PROPHYLAXIS
     Dosage: 150 MILLIGRAM
     Route: 048
     Dates: start: 20090626
  8. FLUCONAZOLE [Concomitant]
     Indication: PROPHYLAXIS
     Route: 048
     Dates: start: 20090626
  9. MICONAZOLE [Concomitant]
     Indication: PROPHYLAXIS
     Route: 061
     Dates: start: 20090626
  10. GRANISETRON [Concomitant]
     Indication: NAUSEA
     Route: 065
     Dates: start: 20090626
  11. CIPROFLOXACIN [Concomitant]
     Indication: PROPHYLAXIS
     Route: 065
     Dates: start: 20090710

REACTIONS (1)
  - Myelodysplastic syndrome [Fatal]
